FAERS Safety Report 4503904-4 (Version None)
Quarter: 2004Q4

REPORT INFORMATION
  Report Type: 
  Country: None (occurrence: None)
  Receive Date: 20041115
  Receipt Date: 20041105
  Transmission Date: 20050328
  Serious: Yes (Death, Life-Threatening)
  Sender: FDA-Public Use
  Company Number: A044-002-005255

PATIENT
  Age: 84 Year
  Sex: Female
  Weight: 40 kg

DRUGS (3)
  1. ARICEPT [Suspect]
     Indication: DEMENTIA ALZHEIMER'S TYPE
     Dosage: 10 MG , 1 IN 1 D, ORAL
     Route: 048
     Dates: start: 20020101
  2. ISOPTIN [Suspect]
     Indication: HYPERTENSION
     Dosage: 240 MG, ORAL; SEVERAL MONTHS AGO
     Route: 048
     Dates: start: 20020101
  3. DEBRIDAT           (TRIMEBUTINE) [Concomitant]

REACTIONS (4)
  - ATRIOVENTRICULAR BLOCK COMPLETE [None]
  - CARDIO-RESPIRATORY ARREST [None]
  - CEREBROVASCULAR DISORDER [None]
  - DRUG INTERACTION [None]
